FAERS Safety Report 15860604 (Version 1)
Quarter: 2019Q1

REPORT INFORMATION
  Report Type: Spontaneous
  Country: PL (occurrence: PL)
  Receive Date: 20190123
  Receipt Date: 20190123
  Transmission Date: 20190417
  Serious: Yes (Hospitalization, Other)
  Sender: FDA-Public Use
  Company Number: PL-ABBVIE-19K-129-2632493-00

PATIENT
  Age: 41 Year
  Sex: Male
  Weight: 96 kg

DRUGS (4)
  1. ADALIMUMAB [Suspect]
     Active Substance: ADALIMUMAB
     Route: 058
     Dates: start: 201806
  2. ADALIMUMAB [Suspect]
     Active Substance: ADALIMUMAB
     Route: 058
     Dates: start: 201409, end: 2015
  3. ADALIMUMAB [Suspect]
     Active Substance: ADALIMUMAB
     Route: 058
     Dates: start: 201510, end: 201604
  4. ADALIMUMAB [Suspect]
     Active Substance: ADALIMUMAB
     Indication: CROHN^S DISEASE
     Route: 058
     Dates: start: 201401

REACTIONS (19)
  - Aphthous ulcer [Recovering/Resolving]
  - Arthralgia [Unknown]
  - Erythema [Recovered/Resolved]
  - Stoma site reaction [Unknown]
  - Stoma site inflammation [Recovering/Resolving]
  - Nodule [Recovered/Resolved]
  - Erythema [Unknown]
  - Stoma obstruction [Unknown]
  - Gastrointestinal haemorrhage [Recovering/Resolving]
  - Purulence [Recovered/Resolved]
  - Purulence [Unknown]
  - Nodule [Unknown]
  - Arthralgia [Recovered/Resolved]
  - Back pain [Recovering/Resolving]
  - Spinal pain [Unknown]
  - Pneumonia [Unknown]
  - Arthralgia [Recovering/Resolving]
  - Fistula [Unknown]
  - Secretion discharge [Unknown]

NARRATIVE: CASE EVENT DATE: 2014
